FAERS Safety Report 8942174 (Version 3)
Quarter: 2013Q1

REPORT INFORMATION
  Report Type: Spontaneous
  Country: JP (occurrence: JP)
  Receive Date: 20121203
  Receipt Date: 20130129
  Transmission Date: 20140127
  Serious: Yes (Hospitalization)
  Sender: FDA-Public Use
  Company Number: JP-MERCK-1211JPN009190

PATIENT
  Age: 76 Year
  Sex: Female

DRUGS (10)
  1. BONALON [Suspect]
     Indication: OSTEOPOROSIS
     Dosage: 5 MG DAILY
     Route: 048
     Dates: end: 201210
  2. FEBURIC [Suspect]
     Indication: HYPERURICAEMIA
     Dosage: 10 MG DAILY
     Route: 048
     Dates: start: 20121001, end: 20121014
  3. ASPARA CA [Concomitant]
     Indication: OSTEOPOROSIS
     Dosage: 200 MG DAILY
     Route: 048
     Dates: end: 20121110
  4. FUROSEMIDE [Concomitant]
     Indication: CARDIAC FAILURE
     Dosage: 20 MG DAILY
     Route: 048
  5. ALDACTONE A [Concomitant]
     Indication: CARDIAC FAILURE
     Dosage: 25 MG DAILY
     Route: 048
  6. APLACE [Concomitant]
     Dosage: 200 MG DAILY
     Route: 048
     Dates: end: 20121110
  7. NIKORANMART [Concomitant]
     Indication: ANGINA PECTORIS
     Dosage: 10 MG DAILY
     Route: 048
     Dates: end: 20121110
  8. ALLELOCK [Concomitant]
     Dosage: 5 MG DAILY
     Route: 048
     Dates: end: 20121110
  9. NITRODERM TTS [Concomitant]
     Indication: ANGINA PECTORIS
     Dosage: 25 MG DAILY
     Route: 061
  10. TRIAZOLAM [Concomitant]
     Indication: INSOMNIA
     Dosage: 0.25 MG DAILY
     Route: 048

REACTIONS (2)
  - Interstitial lung disease [Not Recovered/Not Resolved]
  - Urticaria [Unknown]
